FAERS Safety Report 7523585-5 (Version None)
Quarter: 2011Q2

REPORT INFORMATION
  Report Type: 
  Country: None (occurrence: None)
  Receive Date: 20110601
  Receipt Date: 20110601
  Transmission Date: 20111010
  Serious: Yes (Other)
  Sender: FDA-Public Use
  Company Number: None

PATIENT
  Age: 26 Year
  Sex: Male
  Weight: 65.7716 kg

DRUGS (1)
  1. MIXED AMPHETAMINE SALTS ER 20MG SHIRE/TEVA [Suspect]
     Indication: ATTENTION DEFICIT/HYPERACTIVITY DISORDER
     Dosage: 20MG 1X DAILY PO
     Route: 048
     Dates: start: 20110506, end: 20110519

REACTIONS (4)
  - FEELING ABNORMAL [None]
  - MALAISE [None]
  - BLEPHAROSPASM [None]
  - PRODUCT SUBSTITUTION ISSUE [None]
